FAERS Safety Report 8301914-2 (Version None)
Quarter: 2012Q2

REPORT INFORMATION
  Report Type: 
  Country: None (occurrence: None)
  Receive Date: 20120418
  Receipt Date: 20120403
  Transmission Date: 20120825
  Serious: Yes (Hospitalization, Other)
  Sender: FDA-Public Use
  Company Number: JPI-9-013408

PATIENT
  Age: 49 Year
  Sex: Male
  Weight: 81.6475 kg

DRUGS (25)
  1. XYREM [Suspect]
     Indication: CATAPLEXY
     Dosage: 8 GM (4 GM, 2 IN 1 D),ORAL,9 GM (4.5 GM,2 IN 1 D),ORAL 3) 12 GM (6 GM,2 IN 1 D),ORAL
     Route: 048
     Dates: start: 20080905
  2. XYREM [Suspect]
     Indication: CATAPLEXY
     Dosage: 8 GM (4 GM, 2 IN 1 D),ORAL,9 GM (4.5 GM,2 IN 1 D),ORAL 3) 12 GM (6 GM,2 IN 1 D),ORAL
     Route: 048
     Dates: start: 20070726, end: 20080904
  3. AMPHETAMINE, DEXTROAMPHETAMINE MIXED SALTS (TABLETS) [Concomitant]
  4. LITHIUM CARBONATE [Concomitant]
  5. AMLODIPINE BESYLATE [Concomitant]
  6. PREDNISONE [Concomitant]
  7. TRIAMCINOLONE ACETONIDE [Concomitant]
  8. OMEPRAZOLE PREGABALIN (CAPSULES) [Concomitant]
  9. ALBUTEROL SULFATE [Concomitant]
  10. FLUCONAZOLE [Concomitant]
  11. OXYCODONE HCL [Concomitant]
  12. CICLESONIDE [Concomitant]
  13. MULTIPLE VITAMINS [Concomitant]
  14. MONTELUKAST SODIUM (TABLETS) [Concomitant]
  15. L-METHYLFOLATE/METHYLCOBALAMIN/N-ACETYLCYSTEINE [Concomitant]
  16. METOPROLOL TARTRATE [Concomitant]
  17. CLONIDINE HCL [Concomitant]
  18. OMEGA-3-ACID ETHYL ESTERS (CAPSULES) [Concomitant]
  19. METOCLOPRAMIDE HYDROCHLORIDE (TABLETS) [Concomitant]
  20. GUAIFENESIN; PSEUDOEPHEDRINE HCL [Concomitant]
  21. RABEPRAZOLE SODIUM (TABLETS) [Concomitant]
  22. QUETIAPINE FUMARATE (TABLETS) [Concomitant]
  23. POTASSIUM CHLORIDE [Concomitant]
  24. TESTOSTERONE [Suspect]
     Indication: BLOOD TESTOSTERONE DECREASED
     Dosage: 1 DOSAGE FORMS (1 DOSAGE FORMS, 1 IN 1 D) , TRANSDERMAL, (2 DOSAGE FORMS)
     Route: 062
     Dates: start: 20101101
  25. FLUTIICASONE PROPIONATE [Concomitant]

REACTIONS (10)
  - SOMNAMBULISM [None]
  - ABNORMAL DREAMS [None]
  - DELUSION [None]
  - PSYCHOTIC DISORDER [None]
  - AGGRESSION [None]
  - RESTLESSNESS [None]
  - HALLUCINATION [None]
  - ABNORMAL BEHAVIOUR [None]
  - URINARY INCONTINENCE [None]
  - OVERDOSE [None]
